FAERS Safety Report 4302438-X (Version None)
Quarter: 2004Q1

REPORT INFORMATION
  Report Type: 
  Country: None (occurrence: None)
  Receive Date: 20040223
  Receipt Date: 20040114
  Transmission Date: 20041129
  Serious: Yes (Hospitalization)
  Sender: FDA-Public Use
  Company Number: CHNY2003JP01190

PATIENT
  Age: 68 Year
  Sex: Female
  Weight: 39 kg

DRUGS (2)
  1. PURSENNID [Suspect]
     Dosage: 4 TAB ONCE/SINGLE, ORAL
     Route: 048
     Dates: start: 20020408, end: 20020408
  2. LAXOBERON  (SODIUM PICOSULFATE) [Suspect]
     Indication: COLONOSCOPY
     Dosage: 10 ML ONCE/SINGLE, ORAL
     Route: 048
     Dates: start: 20020408, end: 20020408

REACTIONS (5)
  - ENTEROCOLITIS [None]
  - INTESTINAL DILATATION [None]
  - INTESTINAL OBSTRUCTION [None]
  - METASTASIS [None]
  - SHOCK [None]
